FAERS Safety Report 11705559 (Version 2)
Quarter: 2015Q4

REPORT INFORMATION
  Report Type: Spontaneous
  Country: US (occurrence: US)
  Receive Date: 20151106
  Receipt Date: 20151204
  Transmission Date: 20160304
  Serious: Yes (Other)
  Sender: FDA-Public Use
  Company Number: US-JNJFOC-20151100662

PATIENT
  Age: 86 Year
  Sex: Male
  Weight: 117.5 kg

DRUGS (2)
  1. ALLOPURINOL. [Concomitant]
     Active Substance: ALLOPURINOL
     Indication: GOUT
     Route: 065
  2. XARELTO [Suspect]
     Active Substance: RIVAROXABAN
     Indication: PULMONARY EMBOLISM
     Route: 048
     Dates: start: 20151030, end: 20151030

REACTIONS (2)
  - Coagulation factor X level increased [Unknown]
  - Colostomy closure [Unknown]

NARRATIVE: CASE EVENT DATE: 201510
